FAERS Safety Report 12385590 (Version 1)
Quarter: 2016Q2

REPORT INFORMATION
  Report Type: Spontaneous
  Country: GB (occurrence: GB)
  Receive Date: 20160519
  Receipt Date: 20160519
  Transmission Date: 20160815
  Serious: Yes (Disabling)
  Sender: FDA-Public Use
  Company Number: GB-GLAXOSMITHKLINE-GB2016068289

PATIENT
  Age: 79 Year
  Sex: Male
  Weight: 66 kg

DRUGS (14)
  1. DILTIAZEM HYDROCHLORIDE. [Concomitant]
     Active Substance: DILTIAZEM HYDROCHLORIDE
     Dosage: 1 DF, QD
     Dates: start: 20151203
  2. DOXYCYCLINE. [Concomitant]
     Active Substance: DOXYCYCLINE
     Dosage: 1 DF, QD, TWO NOW THEN ONE DAILY
     Dates: start: 20160413
  3. EZETIMIBE. [Concomitant]
     Active Substance: EZETIMIBE
     Dosage: 1 DF, QD
     Dates: start: 20160122
  4. CARBOCISTEINE [Concomitant]
     Active Substance: CARBOCYSTEINE
     Dosage: 1 DF, BID
     Dates: start: 20151203
  5. INDAPAMIDE. [Concomitant]
     Active Substance: INDAPAMIDE
     Dosage: 1 DF, QD, EACH MORNING
     Dates: start: 20151203
  6. FLUTICASONE FUROATE [Suspect]
     Active Substance: FLUTICASONE FUROATE
     Indication: PRODUCT USED FOR UNKNOWN INDICATION
     Dosage: 1 DF, UNK
     Route: 065
     Dates: start: 20160504
  7. PREDNISOLONE. [Concomitant]
     Active Substance: PREDNISOLONE
     Dosage: 6 DF, QD
     Dates: start: 20160413
  8. SYMBICORT [Concomitant]
     Active Substance: BUDESONIDE\FORMOTEROL FUMARATE DIHYDRATE
     Dosage: 2 DF, BID, PUFFS
     Dates: start: 20141215
  9. ASPIRIN. [Concomitant]
     Active Substance: ASPIRIN
     Dosage: 1 DF, QD, IN THE AFTERNOON
     Dates: start: 20151203
  10. FOSTAIR [Concomitant]
     Active Substance: BECLOMETHASONE\FORMOTEROL
     Dosage: 2 DF, BID, PUFFS
     Dates: start: 20160504
  11. FINASTERIDE. [Concomitant]
     Active Substance: FINASTERIDE
     Dosage: 1 DF, QD
     Dates: start: 20151203
  12. TAMSULOSIN HYDROCHLORIDE. [Concomitant]
     Active Substance: TAMSULOSIN HYDROCHLORIDE
     Dosage: 1 DF, QD
     Dates: start: 20151203
  13. SALBUTAMOL [Concomitant]
     Active Substance: ALBUTEROL
     Dosage: 2 DF, UNK
     Route: 055
     Dates: start: 20141215
  14. TIOTROPIUM [Concomitant]
     Active Substance: TIOTROPIUM
     Dosage: 1 DF, QD
     Route: 055
     Dates: start: 20150205, end: 20160413

REACTIONS (3)
  - Feeling hot [Recovered/Resolved]
  - Non-cardiac chest pain [Recovered/Resolved]
  - Headache [Recovered/Resolved]

NARRATIVE: CASE EVENT DATE: 20160504
